FAERS Safety Report 4428596-4 (Version None)
Quarter: 2004Q3

REPORT INFORMATION
  Report Type: 
  Country: None (occurrence: None)
  Receive Date: 20040813
  Receipt Date: 20040803
  Transmission Date: 20050211
  Serious: Yes (Death, Life-Threatening, Hospitalization, Other)
  Sender: FDA-Public Use
  Company Number: 2003-02-2390

PATIENT
  Age: 46 Year
  Sex: Female
  Weight: 40 kg

DRUGS (7)
  1. REBETOL [Suspect]
     Indication: HEPATITIS C
     Dosage: 600 MG QD ORAL
     Route: 048
     Dates: start: 20030120, end: 20030219
  2. INTRON A [Suspect]
     Indication: HEPATITIS C
     Dosage: 10 MU 6X/WK INTRAMUSCULA
     Route: 030
     Dates: start: 20030120, end: 20030217
  3. TRIAZOLAM [Concomitant]
  4. LOXOPROFEN SODIUM [Concomitant]
  5. GATIFLOXACIN [Concomitant]
  6. TEPRENONE [Concomitant]
  7. FAMOTIDINE [Concomitant]

REACTIONS (20)
  - ANAEMIA [None]
  - BRAIN DEATH [None]
  - CARDIAC ARREST [None]
  - CARDIO-RESPIRATORY ARREST [None]
  - CEREBRAL HAEMORRHAGE [None]
  - CEREBRAL INFARCTION [None]
  - DECREASED APPETITE [None]
  - DEHYDRATION [None]
  - DEPRESSED LEVEL OF CONSCIOUSNESS [None]
  - DIABETES INSIPIDUS [None]
  - DISSEMINATED INTRAVASCULAR COAGULATION [None]
  - DYSARTHRIA [None]
  - ELECTROLYTE IMBALANCE [None]
  - INFECTION [None]
  - MALAISE [None]
  - PLATELET COUNT DECREASED [None]
  - PYELONEPHRITIS [None]
  - PYELONEPHRITIS ACUTE [None]
  - RENAL IMPAIRMENT [None]
  - THROMBOSIS [None]
